FAERS Safety Report 7706368-2 (Version None)
Quarter: 2011Q3

REPORT INFORMATION
  Report Type: 
  Country: None (occurrence: None)
  Receive Date: 20110824
  Receipt Date: 20110819
  Transmission Date: 20111222
  Serious: Yes (Hospitalization, Other)
  Sender: FDA-Public Use
  Company Number: FR-PFIZER INC-2011191556

PATIENT
  Age: 51 Year
  Sex: Female

DRUGS (8)
  1. NEURONTIN [Suspect]
     Dosage: 300 MG, 3X/DAY
     Route: 048
     Dates: start: 20110429, end: 20110514
  2. ACUPAN [Concomitant]
     Dosage: 4 AMPOULES PER DAY
  3. LEVOFLOXACIN [Concomitant]
     Indication: INTERVERTEBRAL DISCITIS
     Dosage: 500 MG, 2X/DAY
     Dates: start: 20110401
  4. NEURONTIN [Suspect]
     Dosage: 400 MG, 3X/DAY
     Route: 048
     Dates: start: 20110515, end: 20110526
  5. TRAMADOL HCL [Concomitant]
     Dosage: 100 MG, 2X/DAY
  6. CLAFORAN [Suspect]
     Indication: INTERVERTEBRAL DISCITIS
     Dosage: 14 G DAILY
     Dates: start: 20110423, end: 20110603
  7. AMITRIPTYLINE HCL [Concomitant]
     Dosage: 25 DROPS PER DAY
  8. LOVENOX [Concomitant]
     Dosage: 0.4 PER DAY

REACTIONS (1)
  - AGRANULOCYTOSIS [None]
